FAERS Safety Report 16763590 (Version 7)
Quarter: 2022Q3

REPORT INFORMATION
  Report Type: Spontaneous
  Country: US (occurrence: US)
  Receive Date: 20190902
  Receipt Date: 20220905
  Transmission Date: 20221026
  Serious: Yes (Hospitalization, Other)
  Sender: FDA-Public Use
  Company Number: US-GILEAD-2019-0425721

PATIENT
  Age: 62 Year
  Sex: Female
  Weight: 117.93 kg

DRUGS (17)
  1. VIREAD [Suspect]
     Active Substance: TENOFOVIR DISOPROXIL FUMARATE
     Indication: HIV infection
     Route: 048
  2. ATRIPLA [Suspect]
     Active Substance: EFAVIRENZ\EMTRICITABINE\TENOFOVIR DISOPROXIL FUMARATE
     Indication: HIV infection
     Dosage: UNK
     Route: 048
     Dates: start: 20000101, end: 20180101
  3. ATRIPLA [Suspect]
     Active Substance: EFAVIRENZ\EMTRICITABINE\TENOFOVIR DISOPROXIL FUMARATE
     Dosage: UNK
     Route: 048
     Dates: start: 2006, end: 201902
  4. ACETAMINOPHEN [Concomitant]
     Active Substance: ACETAMINOPHEN
  5. AMOXICILLIN [Concomitant]
     Active Substance: AMOXICILLIN
  6. ASPIRIN [Concomitant]
     Active Substance: ASPIRIN
  7. MAGNESIUM OXIDE\SODIUM BICARBONATE [Concomitant]
     Active Substance: MAGNESIUM OXIDE\SODIUM BICARBONATE
  8. BACTRIM [Concomitant]
     Active Substance: SULFAMETHOXAZOLE\TRIMETHOPRIM
  9. CORTISONE [Concomitant]
     Active Substance: CORTISONE
  10. FLEET LAXATIVE [Concomitant]
  11. FUROSEMIDE\POTASSIUM CHLORIDE [Concomitant]
     Active Substance: FUROSEMIDE\POTASSIUM CHLORIDE
  12. PENICILLIN [Concomitant]
     Active Substance: PENICILLIN
  13. COMBIVIR [Concomitant]
     Active Substance: LAMIVUDINE\ZIDOVUDINE
  14. EPIVIR [Concomitant]
     Active Substance: LAMIVUDINE
  15. RETROVIR [Concomitant]
     Active Substance: ZIDOVUDINE
  16. VIRACEPT [Concomitant]
     Active Substance: NELFINAVIR MESYLATE
  17. ZERIT [Concomitant]
     Active Substance: STAVUDINE

REACTIONS (18)
  - Chronic kidney disease [Not Recovered/Not Resolved]
  - Osteoporosis [Not Recovered/Not Resolved]
  - Ill-defined disorder [Not Recovered/Not Resolved]
  - Renal failure [Not Recovered/Not Resolved]
  - Renal tubular necrosis [Not Recovered/Not Resolved]
  - Acute kidney injury [Not Recovered/Not Resolved]
  - Bone density decreased [Unknown]
  - Tooth loss [Unknown]
  - Pain [Unknown]
  - Emotional distress [Unknown]
  - Anxiety [Not Recovered/Not Resolved]
  - Anhedonia [Unknown]
  - Economic problem [Unknown]
  - Mobility decreased [Not Recovered/Not Resolved]
  - Gait disturbance [Not Recovered/Not Resolved]
  - Insomnia [Not Recovered/Not Resolved]
  - Osteoarthritis [Not Recovered/Not Resolved]
  - Depression [Not Recovered/Not Resolved]

NARRATIVE: CASE EVENT DATE: 20130101
